FAERS Safety Report 23792555 (Version 1)
Quarter: 2024Q2

REPORT INFORMATION
  Report Type: Spontaneous
  Country: FR (occurrence: FR)
  Receive Date: 20240429
  Receipt Date: 20240429
  Transmission Date: 20240715
  Serious: Yes (Other)
  Sender: FDA-Public Use
  Company Number: None

PATIENT
  Age: 69 Year
  Sex: Female
  Weight: 90 kg

DRUGS (2)
  1. OXALIPLATIN [Suspect]
     Active Substance: OXALIPLATIN
     Indication: Adenocarcinoma of colon
     Dosage: 65MG/M? OR APPROXIMATELY 125MG, OXALIPLATIN TEVA
     Route: 042
     Dates: start: 20230224, end: 20230717
  2. FLUOROURACIL [Concomitant]
     Active Substance: FLUOROURACIL
     Indication: Adenocarcinoma of colon
     Dosage: 1400MG/M? OR 2800MG, FLUOROURACIL PFIZER
     Route: 042
     Dates: start: 20230224, end: 20230804

REACTIONS (3)
  - Condition aggravated [Recovered/Resolved]
  - Diarrhoea [Recovered/Resolved]
  - Diabetic neuropathy [Recovered/Resolved]

NARRATIVE: CASE EVENT DATE: 20230324
